FAERS Safety Report 10917305 (Version 3)
Quarter: 2015Q2

REPORT INFORMATION
  Report Type: Report from Study
  Country: US (occurrence: US)
  Receive Date: 20150316
  Receipt Date: 20150415
  Transmission Date: 20150821
  Serious: Yes (Hospitalization, Other)
  Sender: FDA-Public Use
  Company Number: US-SA-2015SA029667

PATIENT
  Age: 66 Year
  Sex: Female

DRUGS (1)
  1. KYNAMRO [Suspect]
     Active Substance: MIPOMERSEN SODIUM
     Indication: TYPE IIA HYPERLIPIDAEMIA
     Route: 065
     Dates: start: 201407, end: 20150108

REACTIONS (5)
  - Haemorrhagic stroke [Recovering/Resolving]
  - Hepatic function abnormal [Unknown]
  - Hemiplegia [Not Recovered/Not Resolved]
  - Speech disorder [Recovering/Resolving]
  - Mental impairment [Unknown]

NARRATIVE: CASE EVENT DATE: 20150112
